FAERS Safety Report 10460011 (Version 1)
Quarter: 2014Q3

REPORT INFORMATION
  Report Type: Report from Study
  Country: US (occurrence: US)
  Receive Date: 20140917
  Receipt Date: 20140917
  Transmission Date: 20150326
  Serious: Yes (Hospitalization)
  Sender: FDA-Public Use
  Company Number: US-ABBVIE-14P-163-1283647-00

PATIENT
  Sex: Female
  Weight: 67.19 kg

DRUGS (2)
  1. CELEBREX [Suspect]
     Active Substance: CELECOXIB
     Indication: BEHCET^S SYNDROME
  2. BIAXIN [Suspect]
     Active Substance: CLARITHROMYCIN
     Indication: BEHCET^S SYNDROME

REACTIONS (3)
  - Pericarditis [Unknown]
  - Off label use [Unknown]
  - Behcet^s syndrome [Unknown]

NARRATIVE: CASE EVENT DATE: 2007
